FAERS Safety Report 19861708 (Version 5)
Quarter: 2025Q4

REPORT INFORMATION
  Report Type: Spontaneous
  Country: US (occurrence: US)
  Receive Date: 20210920
  Receipt Date: 20251210
  Transmission Date: 20260118
  Serious: Yes (Other)
  Sender: PFIZER
  Company Number: US-PFIZER INC-202101060681

PATIENT
  Age: 72 Year
  Sex: Female
  Weight: 65.77 kg

DRUGS (5)
  1. PREMARIN [Suspect]
     Active Substance: ESTROGENS, CONJUGATED
     Indication: Menopause
     Dosage: UNK (STRONGEST ONE)
  2. PREMARIN [Suspect]
     Active Substance: ESTROGENS, CONJUGATED
     Indication: Postmenopause
     Dosage: 0.625 MG, 1X/DAY
     Dates: end: 202106
  3. PREMARIN [Suspect]
     Active Substance: ESTROGENS, CONJUGATED
     Indication: Artificial menopause
     Dosage: TAKE 1 TABLET (0.625 MG) BY MOUTH 1 TIME PER DAY
     Route: 048
  4. ATORVASTATIN [Concomitant]
     Active Substance: ATORVASTATIN
     Indication: Blood cholesterol abnormal
     Dosage: 20 MG, 1X/DAY
  5. LOSARTAN [Concomitant]
     Active Substance: LOSARTAN
     Indication: Blood pressure abnormal
     Dosage: 25 MG, 1X/DAY

REACTIONS (3)
  - Hot flush [Not Recovered/Not Resolved]
  - Sleep deficit [Not Recovered/Not Resolved]
  - Solar lentigo [Unknown]

NARRATIVE: CASE EVENT DATE: 20210101
